FAERS Safety Report 9704510 (Version 2)
Quarter: 2014Q1

REPORT INFORMATION
  Report Type: Spontaneous
  Country: US (occurrence: US)
  Receive Date: 20131122
  Receipt Date: 20140110
  Transmission Date: 20141002
  Serious: No
  Sender: FDA-Public Use
  Company Number: US-PFIZER INC-2013333979

PATIENT
  Age: 85 Year
  Sex: Female
  Weight: 70.3 kg

DRUGS (7)
  1. LYRICA [Suspect]
     Indication: BACK DISORDER
     Dosage: 75 MG, 3X/DAY
     Route: 048
     Dates: start: 20131125
  2. LYRICA [Suspect]
     Dosage: 75 MG, DAILY
     Route: 048
  3. LYRICA [Suspect]
     Dosage: 75 MG, 1X/DAY
     Route: 048
  4. NEURONTIN [Suspect]
     Dosage: 300 MG, 3X/DAY
     Route: 048
     Dates: start: 20131022, end: 20131124
  5. VIMOVO [Concomitant]
     Indication: ARTHRITIS
     Dosage: ESOMEPRAZOLE MAGNESIUM 375 MG, NAPROXEN 20 MG
  6. AMLODIPINE BESYLATE [Concomitant]
     Indication: BLOOD PRESSURE ABNORMAL
     Dosage: 5 MG, DAILY
     Route: 048
  7. NORVASC [Concomitant]
     Dosage: 5 MG, UNK

REACTIONS (9)
  - Somnolence [Recovered/Resolved]
  - Drug hypersensitivity [Unknown]
  - Swelling [Unknown]
  - Rash [Unknown]
  - Feeling abnormal [Unknown]
  - Drug intolerance [Unknown]
  - Fatigue [Recovered/Resolved]
  - Swelling face [Recovered/Resolved]
  - Local swelling [Recovered/Resolved]
